FAERS Safety Report 11709164 (Version 1)
Quarter: 2015Q4

REPORT INFORMATION
  Report Type: Spontaneous
  Country: US (occurrence: US)
  Receive Date: 20151104
  Receipt Date: 20151104
  Transmission Date: 20160304
  Serious: No
  Sender: FDA-Public Use
  Company Number: US-ELI_LILLY_AND_COMPANY-US201103005169

PATIENT
  Sex: Female

DRUGS (5)
  1. FORTEO [Suspect]
     Active Substance: TERIPARATIDE
     Dosage: 20 UG, QD
  2. PREDNISONE. [Concomitant]
     Active Substance: PREDNISONE
  3. COZAAR [Concomitant]
     Active Substance: LOSARTAN POTASSIUM
  4. PROPANOLOL [Concomitant]
     Active Substance: PROPRANOLOL HYDROCHLORIDE
  5. FORTEO [Suspect]
     Active Substance: TERIPARATIDE
     Indication: OSTEOPOROSIS
     Dosage: 20 UG, QD
     Route: 065
     Dates: start: 201102

REACTIONS (11)
  - Skin atrophy [Unknown]
  - Impaired healing [Unknown]
  - Drug intolerance [Unknown]
  - Adverse event [Unknown]
  - Palpitations [Not Recovered/Not Resolved]
  - Hyperhidrosis [Unknown]
  - Blood pressure increased [Unknown]
  - Increased tendency to bruise [Unknown]
  - Muscle disorder [Unknown]
  - Dizziness [Not Recovered/Not Resolved]
  - Hypotonia [Unknown]
